FAERS Safety Report 21581260 (Version 1)
Quarter: 2022Q4

REPORT INFORMATION
  Report Type: Other
  Country: None (occurrence: US)
  Receive Date: 20221111
  Receipt Date: 20221111
  Transmission Date: 20230113
  Serious: Yes (Hospitalization)
  Sender: FDA-Public Use
  Company Number: US-OrBion Pharmaceuticals Private Limited-2134758

PATIENT
  Age: 42 Year
  Sex: Female

DRUGS (3)
  1. ESZOPICLONE [Suspect]
     Active Substance: ESZOPICLONE
     Route: 065
  2. HYDROXYZINE [Suspect]
     Active Substance: HYDROXYZINE HYDROCHLORIDE
     Route: 065
  3. TIZANIDINE [Suspect]
     Active Substance: TIZANIDINE
     Route: 065

REACTIONS (9)
  - Heart rate increased [Recovered/Resolved]
  - Hypotension [Recovered/Resolved]
  - Seizure [Recovered/Resolved]
  - Brain death [Recovered/Resolved]
  - Respiratory acidosis [Recovered/Resolved]
  - Areflexia [Recovered/Resolved]
  - Unresponsive to stimuli [Recovered/Resolved]
  - Encephalopathy [Recovered/Resolved]
  - Overdose [Recovered/Resolved]
